FAERS Safety Report 24716561 (Version 1)
Quarter: 2024Q4

REPORT INFORMATION
  Report Type: Spontaneous
  Country: BR (occurrence: BR)
  Receive Date: 20241210
  Receipt Date: 20241210
  Transmission Date: 20250114
  Serious: Yes (Other)
  Sender: SANOFI AVENTIS
  Company Number: BR-SANOFI-02331876

PATIENT
  Sex: Male

DRUGS (1)
  1. CEREZYME [Suspect]
     Active Substance: IMIGLUCERASE
     Indication: Gaucher^s disease type I
     Dosage: UNK

REACTIONS (5)
  - Tricuspid valve incompetence [Unknown]
  - Pulmonary hypertension [Unknown]
  - Osteonecrosis [Unknown]
  - Osteopenia [Unknown]
  - Fatigue [Unknown]
